FAERS Safety Report 17256485 (Version 2)
Quarter: 2020Q1

REPORT INFORMATION
  Report Type: Spontaneous
  Country: US (occurrence: US)
  Receive Date: 20200110
  Receipt Date: 20200113
  Transmission Date: 20200409
  Serious: Yes (Death, Other)
  Sender: FDA-Public Use
  Company Number: US-SERB S.A.S.-2078802

PATIENT
  Age: 64 Year
  Sex: Male

DRUGS (8)
  1. METHYLENE BLUE. [Concomitant]
     Active Substance: METHYLENE BLUE
  2. VASOPRESSIN. [Concomitant]
     Active Substance: VASOPRESSIN
  3. EPINEPHRINE. [Concomitant]
     Active Substance: EPINEPHRINE
  4. ASCORBIC ACID. [Suspect]
     Active Substance: ASCORBIC ACID
     Route: 042
  5. ANGIOTENSIN II [Concomitant]
     Active Substance: ANGIOTENSIN II
  6. CYANOKIT [Suspect]
     Active Substance: HYDROXOCOBALAMIN
     Indication: VASOPLEGIA SYNDROME
     Route: 042
  7. NOREPINEPHRINE. [Concomitant]
     Active Substance: NOREPINEPHRINE
  8. STERIODS [Concomitant]
     Active Substance: UNSPECIFIED INGREDIENT

REACTIONS (8)
  - Drug ineffective for unapproved indication [Unknown]
  - Cardiomyopathy [Not Recovered/Not Resolved]
  - Product use in unapproved indication [Recovered/Resolved]
  - Toxicity to various agents [Not Recovered/Not Resolved]
  - Neuralgia [Not Recovered/Not Resolved]
  - Multiple organ dysfunction syndrome [Fatal]
  - Product use issue [Recovered/Resolved]
  - Crystal nephropathy [Not Recovered/Not Resolved]
